FAERS Safety Report 6465831-5 (Version None)
Quarter: 2009Q4

REPORT INFORMATION
  Report Type: 
  Country: None (occurrence: None)
  Receive Date: 20091127
  Receipt Date: 20091110
  Transmission Date: 20100525
  Serious: No
  Sender: FDA-Public Use
  Company Number: 2009-023A

PATIENT
  Age: 74 Year

DRUGS (2)
  1. DUREZOL [Suspect]
     Indication: IRITIS
     Dosage: 1 DROP OD BID, QD, QOD
     Dates: start: 20090622, end: 20091014
  2. LUMIGAN [Concomitant]

REACTIONS (4)
  - CORNEAL TRANSPLANT [None]
  - DISEASE RECURRENCE [None]
  - IRITIS [None]
  - ULCERATIVE KERATITIS [None]
